FAERS Safety Report 15347999 (Version 1)
Quarter: 2018Q3

REPORT INFORMATION
  Report Type: Report from Study
  Country: US (occurrence: US)
  Receive Date: 20180904
  Receipt Date: 20180904
  Transmission Date: 20181010
  Serious: Yes (Death, Other)
  Sender: FDA-Public Use
  Company Number: US-BAYER-2017-116345

PATIENT
  Age: 64 Year
  Sex: Male

DRUGS (3)
  1. STIVARGA [Suspect]
     Active Substance: REGORAFENIB
     Indication: COLON CANCER
     Dosage: 160 MG DAILY
     Route: 048
  2. STIVARGA [Suspect]
     Active Substance: REGORAFENIB
     Indication: COLON CANCER
     Dosage: 120 MG, DAILY
     Route: 048
     Dates: start: 20170503
  3. OMEPRAZOLE. [Concomitant]
     Active Substance: OMEPRAZOLE
     Dosage: 40 MG, EVERY MORNING

REACTIONS (12)
  - Metastases to lung [None]
  - Death [Fatal]
  - Cholelithiasis [None]
  - Hepatic mass [None]
  - Pleural effusion [None]
  - Erythema [None]
  - Faeces discoloured [None]
  - Gastric infection [Not Recovered/Not Resolved]
  - Diarrhoea [None]
  - Weight decreased [None]
  - Haemorrhagic anaemia [None]
  - Haemorrhoids [None]

NARRATIVE: CASE EVENT DATE: 20170612
